APPROVED DRUG PRODUCT: COUMADIN
Active Ingredient: WARFARIN SODIUM
Strength: 2MG
Dosage Form/Route: TABLET;ORAL
Application: N009218 | Product #013
Applicant: BRISTOL MYERS SQUIBB PHARMA CO
Approved: Approved Prior to Jan 1, 1982 | RLD: Yes | RS: No | Type: DISCN